FAERS Safety Report 7049562-9 (Version None)
Quarter: 2010Q4

REPORT INFORMATION
  Report Type: 
  Country: None (occurrence: None)
  Receive Date: 20101018
  Receipt Date: 20101011
  Transmission Date: 20110411
  Serious: Yes (Hospitalization, Other)
  Sender: FDA-Public Use
  Company Number: US-PFIZER INC-2010129539

PATIENT
  Sex: Male
  Weight: 84 kg

DRUGS (1)
  1. XALATAN [Suspect]
     Indication: GLAUCOMA
     Dosage: ONE DROP IN BOTH EYES, 1X/DAY
     Route: 047

REACTIONS (2)
  - DRY EYE [None]
  - THROMBOSIS [None]
